FAERS Safety Report 7790540-X (Version None)
Quarter: 2011Q3

REPORT INFORMATION
  Report Type: 
  Country: None (occurrence: None)
  Receive Date: 20110930
  Receipt Date: 20110927
  Transmission Date: 20111222
  Serious: Yes (Other)
  Sender: FDA-Public Use
  Company Number: PHHY2011PL86319

PATIENT

DRUGS (2)
  1. ZOMETA [Suspect]
  2. SUNITINIB MALATE [Concomitant]

REACTIONS (1)
  - OSTEONECROSIS OF JAW [None]
